FAERS Safety Report 22235429 (Version 1)
Quarter: 2023Q2

REPORT INFORMATION
  Report Type: Spontaneous
  Country: US (occurrence: US)
  Receive Date: 20230420
  Receipt Date: 20230420
  Transmission Date: 20230721
  Serious: Yes (Hospitalization)
  Sender: FDA-Public Use
  Company Number: US-SAREPTA THERAPEUTICS INC.-SRP2023-003259

PATIENT
  Age: 17 Year
  Sex: Male
  Weight: 66.6 kg

DRUGS (12)
  1. VYONDYS 53 [Suspect]
     Active Substance: GOLODIRSEN
     Indication: Duchenne muscular dystrophy
     Dosage: 2000 MILLIGRAM, WEEKLY
     Route: 042
     Dates: start: 20200914, end: 20230215
  2. VYONDYS 53 [Suspect]
     Active Substance: GOLODIRSEN
     Dosage: 2000 MILLIGRAM, WEEKLY
     Route: 042
     Dates: start: 20230301
  3. DEFLAZACORT [Concomitant]
     Active Substance: DEFLAZACORT
     Indication: Product used for unknown indication
     Dosage: 15 MILLIGRAM, QD
     Route: 048
  4. FLUOXETINE HYDROCHLORIDE [Concomitant]
     Active Substance: FLUOXETINE HYDROCHLORIDE
     Indication: Product used for unknown indication
     Dosage: 30 MILLIGRAM, QD
     Route: 048
  5. METOPROLOL TARTRATE [Concomitant]
     Active Substance: METOPROLOL TARTRATE
     Indication: Product used for unknown indication
     Dosage: 37.5 MILLIGRAM, BID
     Route: 048
  6. OMEPRAZOLE [Concomitant]
     Active Substance: OMEPRAZOLE
     Indication: Product used for unknown indication
     Dosage: 40 MILLIGRAM, QD
     Route: 048
  7. TESTOSTERONE CYPIONATE [Concomitant]
     Active Substance: TESTOSTERONE CYPIONATE
     Indication: Product used for unknown indication
     Dosage: 50 MILLIGRAM 50MG/0.5ML, MONTHLY
     Route: 030
  8. ZYRTEC [Concomitant]
     Active Substance: CETIRIZINE HYDROCHLORIDE
     Indication: Product used for unknown indication
     Dosage: 10 MILLIGRAM, QD
     Route: 048
  9. LISINOPRIL [Concomitant]
     Active Substance: LISINOPRIL
     Indication: Product used for unknown indication
     Dosage: 2.5 MILLIGRAM, QD
     Route: 048
  10. ONDANSETRON [Concomitant]
     Active Substance: ONDANSETRON
     Indication: Product used for unknown indication
     Dosage: 4 MILLIGRAM, Q8H PRN
     Route: 048
  11. UNSPECIFIED INGREDIENT [Concomitant]
     Active Substance: UNSPECIFIED INGREDIENT
     Indication: Product used for unknown indication
     Dosage: 0.05 MG/KG,  NEXT DUE SEP 2022
  12. VITAMIN D NOS [Concomitant]
     Active Substance: VITAMIN D NOS
     Indication: Product used for unknown indication
     Dosage: 2000 INTERNATIONAL UNIT, QD

REACTIONS (1)
  - Norovirus infection [Unknown]

NARRATIVE: CASE EVENT DATE: 20230221
